FAERS Safety Report 16868634 (Version 1)
Quarter: 2019Q3

REPORT INFORMATION
  Report Type: Spontaneous
  Country: GB (occurrence: GB)
  Receive Date: 20190930
  Receipt Date: 20190930
  Transmission Date: 20191005
  Serious: Yes (Life-Threatening, Other)
  Sender: FDA-Public Use
  Company Number: GB-AMNEAL PHARMACEUTICALS-2019-AMRX-01994

PATIENT
  Age: 50 Year
  Sex: Female

DRUGS (1)
  1. ADRENACLICK [Suspect]
     Active Substance: EPINEPHRINE
     Indication: VASOCONSTRICTION
     Dosage: UNK

REACTIONS (2)
  - Stress cardiomyopathy [Unknown]
  - Cardiac arrest [Unknown]
